FAERS Safety Report 18982583 (Version 3)
Quarter: 2021Q2

REPORT INFORMATION
  Report Type: Spontaneous
  Country: JP (occurrence: JP)
  Receive Date: 20210308
  Receipt Date: 20210504
  Transmission Date: 20210717
  Serious: Yes (Other)
  Sender: FDA-Public Use
  Company Number: JP-PFIZER INC-2021213007

PATIENT
  Age: 84 Year
  Sex: Male
  Weight: 65 kg

DRUGS (15)
  1. SODIUM CHLORIDE. [Concomitant]
     Active Substance: SODIUM CHLORIDE
     Dosage: 100 ML, 2X/DAY
     Dates: start: 20210203, end: 20210204
  2. CILOSTAZOL. [Concomitant]
     Active Substance: CILOSTAZOL
     Indication: ARTERIAL THROMBOSIS
     Dosage: 100 MG, 2X/DAY
     Route: 048
     Dates: start: 20201123
  3. PIOGLITAZONE HYDROCHLORIDE. [Concomitant]
     Active Substance: PIOGLITAZONE HYDROCHLORIDE
     Indication: TYPE 2 DIABETES MELLITUS
     Dosage: 15 MG, 1X/DAY
     Route: 048
     Dates: start: 20201224
  4. JANUVIA [Concomitant]
     Active Substance: SITAGLIPTIN PHOSPHATE
     Indication: TYPE 2 DIABETES MELLITUS
     Dosage: 50 MG, 1X/DAY
     Route: 048
     Dates: start: 20201224
  5. CILOSTAZOL. [Concomitant]
     Active Substance: CILOSTAZOL
     Indication: THROMBOTIC CEREBRAL INFARCTION
  6. METFORMIN HYDROCHLORIDE. [Concomitant]
     Active Substance: METFORMIN HYDROCHLORIDE
     Indication: TYPE 2 DIABETES MELLITUS
     Dosage: 250 MG, 2X/DAY
     Route: 048
     Dates: start: 20201216
  7. CILNIDIPINE [Concomitant]
     Active Substance: CILNIDIPINE
     Indication: HYPERTENSION
     Dosage: 10 MG, 1X/DAY
     Route: 048
     Dates: start: 20201224
  8. SOLU?MEDROL [Suspect]
     Active Substance: METHYLPREDNISOLONE SODIUM SUCCINATE
     Indication: INTERSTITIAL LUNG DISEASE
     Dosage: 500 MG, 2X/DAY
     Route: 041
     Dates: start: 20210204, end: 20210205
  9. FAMOTIDINE. [Concomitant]
     Active Substance: FAMOTIDINE
     Dosage: 20 MG, 2X/DAY (1A TWICE A DAY)
     Route: 041
     Dates: start: 20210204, end: 20210204
  10. GLUCONSAN K [Concomitant]
     Active Substance: POTASSIUM GLUCONATE
     Indication: HYPOKALAEMIA
     Dosage: 5 MEQ, 3X/DAY
     Route: 048
     Dates: start: 20201124
  11. PIPERACILLIN SODIUM NICHIIKO [Concomitant]
     Active Substance: PIPERACILLIN SODIUM
     Indication: PNEUMONIA ASPIRATION
     Dosage: 2 G, 2X/DAY
     Route: 041
     Dates: start: 20210203, end: 20210204
  12. ACTIT [Concomitant]
     Dosage: 500 MG, 2X/DAY (TWICE DAILY)
     Route: 041
     Dates: start: 20210204, end: 20210205
  13. PAREPLUS [Concomitant]
     Active Substance: AMINO ACIDS\DEXTROSE\ELECTROLYTES NOS\VITAMINS
     Dosage: 500 ML, 2X/DAY (TWICE DAILY)
     Route: 041
     Dates: start: 20210203, end: 20210205
  14. METFORMIN HYDROCHLORIDE. [Concomitant]
     Active Substance: METFORMIN HYDROCHLORIDE
     Dosage: 500 MG, 2X/DAY
     Route: 048
     Dates: start: 20210123
  15. ATORVASTATIN [Concomitant]
     Active Substance: ATORVASTATIN
     Indication: LIPIDS ABNORMAL
     Dosage: 10 MG, 1X/DAY
     Route: 048
     Dates: start: 20201123

REACTIONS (4)
  - Confusional state [Recovered/Resolved]
  - Depression [Recovered/Resolved]
  - Suicidal ideation [Recovered/Resolved]
  - Mental disorder [Recovered/Resolved]

NARRATIVE: CASE EVENT DATE: 20210206
